FAERS Safety Report 9392824 (Version 1)
Quarter: 2013Q3

REPORT INFORMATION
  Report Type: Spontaneous
  Country: US (occurrence: None)
  Receive Date: 20130708
  Receipt Date: 20130708
  Transmission Date: 20140515
  Serious: Yes (Other)
  Sender: FDA-Public Use
  Company Number: None

PATIENT
  Age: 26 Year
  Sex: Female
  Weight: 102.51 kg

DRUGS (1)
  1. LABETALOL [Suspect]
     Indication: SUPRAVENTRICULAR TACHYCARDIA
     Dosage: 30FEB2013

REACTIONS (1)
  - Diabetic ketoacidosis [None]
